FAERS Safety Report 18514172 (Version 1)
Quarter: 2020Q4

REPORT INFORMATION
  Report Type: Spontaneous
  Country: US (occurrence: US)
  Receive Date: 20201117
  Receipt Date: 20201117
  Transmission Date: 20210114
  Serious: No
  Sender: FDA-Public Use
  Company Number: US-AMGEN-USASP2020185575

PATIENT
  Age: 74 Year
  Sex: Female

DRUGS (1)
  1. MVASI [Suspect]
     Active Substance: BEVACIZUMAB-AWWB
     Indication: BREAST DISORDER
     Dosage: 800 MILLIGRAM
     Route: 065
     Dates: start: 20201028

REACTIONS (3)
  - Rash [Unknown]
  - Herpes zoster [Unknown]
  - Off label use [Unknown]
